APPROVED DRUG PRODUCT: RIFABUTIN
Active Ingredient: RIFABUTIN
Strength: 150MG
Dosage Form/Route: CAPSULE;ORAL
Application: A090033 | Product #001
Applicant: LUPIN LTD
Approved: Feb 24, 2014 | RLD: No | RS: No | Type: DISCN